FAERS Safety Report 15372730 (Version 1)
Quarter: 2018Q3

REPORT INFORMATION
  Report Type: Spontaneous
  Country: IN (occurrence: IN)
  Receive Date: 20180912
  Receipt Date: 20180912
  Transmission Date: 20181010
  Serious: Yes (Life-Threatening)
  Sender: FDA-Public Use
  Company Number: IN-ROCHE-2183768

PATIENT
  Age: 70 Year
  Sex: Male
  Weight: 65 kg

DRUGS (1)
  1. ACCENTRIX [Suspect]
     Active Substance: RANIBIZUMAB
     Indication: PRODUCT USED FOR UNKNOWN INDICATION
     Dosage: 0.5 MG, UNK (AS NEEDED)
     Route: 047
     Dates: start: 20180822

REACTIONS (1)
  - Cardiac dysfunction [Recovered/Resolved]

NARRATIVE: CASE EVENT DATE: 20180822
